FAERS Safety Report 9927863 (Version 1)
Quarter: 2014Q1

REPORT INFORMATION
  Report Type: Spontaneous
  Country: FR (occurrence: None)
  Receive Date: 20140221
  Receipt Date: 20140221
  Transmission Date: 20141002
  Serious: Yes (Hospitalization)
  Sender: FDA-Public Use
  Company Number: B0967113A

PATIENT
  Age: 91 Year
  Sex: Female

DRUGS (14)
  1. PAROXETINE HYDROCHLORIDE [Suspect]
     Indication: PRODUCT USED FOR UNKNOWN INDICATION
     Route: 048
     Dates: start: 20131013, end: 20131121
  2. ALPRAZOLAM [Suspect]
     Indication: PRODUCT USED FOR UNKNOWN INDICATION
     Route: 048
  3. VENLAFAXINE HYDROCHLORIDE [Suspect]
     Indication: PRODUCT USED FOR UNKNOWN INDICATION
     Route: 048
     Dates: start: 20131213
  4. OXAZEPAM [Suspect]
     Indication: PRODUCT USED FOR UNKNOWN INDICATION
     Route: 048
     Dates: start: 20131203
  5. PIPAMPERONE [Suspect]
     Indication: PRODUCT USED FOR UNKNOWN INDICATION
     Route: 048
     Dates: start: 20131022, end: 20131022
  6. VALPROIC ACID [Suspect]
     Indication: PRODUCT USED FOR UNKNOWN INDICATION
     Route: 048
     Dates: start: 20131203
  7. FRUSEMIDE [Concomitant]
  8. VALPROMIDE [Concomitant]
  9. NEBIVOLOL HCL [Concomitant]
  10. WARFARIN SODIUM [Concomitant]
  11. ESOMEPRAZOLE [Concomitant]
  12. CALCIDOSE VITAMIN D (CALCIUM CARBONATE, COLECALCIFEROL) [Concomitant]
  13. PARACETAMOL [Concomitant]
  14. CORTICOSTEROID [Concomitant]

REACTIONS (11)
  - Fall [None]
  - Depressed mood [None]
  - Psychomotor retardation [None]
  - Asthenia [None]
  - Mobility decreased [None]
  - Forearm fracture [None]
  - Fracture displacement [None]
  - Wound [None]
  - Pyrexia [None]
  - Respiratory disorder [None]
  - Discomfort [None]
